FAERS Safety Report 7234635-8 (Version None)
Quarter: 2011Q1

REPORT INFORMATION
  Report Type: 
  Country: None (occurrence: None)
  Receive Date: 20110120
  Receipt Date: 20110110
  Transmission Date: 20110831
  Serious: No
  Sender: FDA-Public Use
  Company Number: US-BIOGENIDEC-2010BI011234

PATIENT
  Age: 52 Year
  Sex: Female

DRUGS (2)
  1. AVONEX [Concomitant]
     Indication: MULTIPLE SCLEROSIS
     Route: 030
     Dates: start: 20020419
  2. TYSABRI [Suspect]
     Indication: MULTIPLE SCLEROSIS
     Route: 042
     Dates: start: 20100305

REACTIONS (4)
  - GAIT DISTURBANCE [None]
  - MULTIPLE SCLEROSIS [None]
  - DRUG INEFFECTIVE [None]
  - MUSCULAR WEAKNESS [None]
